FAERS Safety Report 8345626-8 (Version None)
Quarter: 2012Q2

REPORT INFORMATION
  Report Type: 
  Country: None (occurrence: None)
  Receive Date: 20120508
  Receipt Date: 20120430
  Transmission Date: 20120825
  Serious: Yes (Hospitalization)
  Sender: FDA-Public Use
  Company Number: US-MERCK-1111USA01725

PATIENT
  Age: 60 Year
  Sex: Female
  Weight: 68 kg

DRUGS (4)
  1. ACTONEL [Suspect]
     Route: 048
     Dates: start: 20090211
  2. FOSAMAX [Suspect]
     Route: 048
     Dates: start: 20000101
  3. FOSAMAX [Suspect]
     Indication: OSTEOPOROSIS
     Route: 048
     Dates: start: 20071013, end: 20081206
  4. BONIVA [Suspect]
     Route: 048
     Dates: start: 20100618

REACTIONS (11)
  - CHOLELITHIASIS [None]
  - FALL [None]
  - BLOOD CHOLESTEROL INCREASED [None]
  - FEMUR FRACTURE [None]
  - DEEP VEIN THROMBOSIS [None]
  - FOOT FRACTURE [None]
  - ANAEMIA POSTOPERATIVE [None]
  - FRACTURE DELAYED UNION [None]
  - RENAL CYST [None]
  - TRANSIENT GLOBAL AMNESIA [None]
  - HYPERPARATHYROIDISM [None]
